FAERS Safety Report 7966903-6 (Version None)
Quarter: 2011Q4

REPORT INFORMATION
  Report Type: 
  Country: None (occurrence: None)
  Receive Date: 20111209
  Receipt Date: 20111128
  Transmission Date: 20120403
  Serious: Yes (Hospitalization)
  Sender: FDA-Public Use
  Company Number: US-ELI_LILLY_AND_COMPANY-US201102000061

PATIENT
  Sex: Male
  Weight: 89.7 kg

DRUGS (8)
  1. VITAMIN D [Concomitant]
     Dosage: UNK, UNKNOWN
     Route: 065
  2. TYLENOL W/ CODEINE [Concomitant]
     Dosage: UNK, UNKNOWN
     Route: 058
     Dates: start: 20100910
  3. ZETIA [Concomitant]
  4. FERREX [Concomitant]
     Dosage: UNK, UNKNOWN
     Route: 065
  5. FORTEO [Suspect]
     Indication: OSTEOPOROSIS
     Dosage: 20 UG, DAILY (1/D)
     Route: 058
     Dates: start: 20100910, end: 20110201
  6. ACTOS [Concomitant]
     Dosage: UNK, UNKNOWN
     Route: 065
  7. SIMVASTATIN [Concomitant]
     Dosage: UNK, UNKNOWN
     Route: 065
  8. FORTEO [Suspect]
     Dosage: 20 UG, DAILY (1/D)
     Route: 058
     Dates: start: 20110701

REACTIONS (4)
  - GALLBLADDER DISORDER [None]
  - RETINAL DETACHMENT [None]
  - SEPSIS [None]
  - KIDNEY INFECTION [None]
